FAERS Safety Report 5768076-7 (Version None)
Quarter: 2008Q2

REPORT INFORMATION
  Report Type: 
  Country: None (occurrence: None)
  Receive Date: 20080612
  Receipt Date: 20071105
  Transmission Date: 20081010
  Serious: No
  Sender: FDA-Public Use
  Company Number: US-ASTRAZENECA-2007UW25577

PATIENT
  Sex: Female

DRUGS (2)
  1. FASLODEX [Suspect]
  2. ZOMETA [Suspect]

REACTIONS (3)
  - FATIGUE [None]
  - MOOD ALTERED [None]
  - NAUSEA [None]
